FAERS Safety Report 5152821-8 (Version None)
Quarter: 2006Q4

REPORT INFORMATION
  Report Type: 
  Country: None (occurrence: None)
  Receive Date: 20061109
  Receipt Date: 20061103
  Transmission Date: 20070319
  Serious: Yes (Hospitalization)
  Sender: FDA-Public Use
  Company Number: GXBR2006US02006

PATIENT
  Age: 48 Year
  Sex: Female
  Weight: 77.1 kg

DRUGS (4)
  1. TRIAMTERENE W/ HYDROCHLOROTHIAZIDE [Suspect]
     Indication: OEDEMA
     Dosage: 37.5/25MG PO QD, ORAL, SEE IMAGE
     Route: 048
     Dates: start: 20060701
  2. COZAAR [Concomitant]
  3. SYNTHROID [Concomitant]
  4. TOPROL-XL [Concomitant]

REACTIONS (7)
  - BACK PAIN [None]
  - BLOOD URINE PRESENT [None]
  - CHEST DISCOMFORT [None]
  - DYSPNOEA [None]
  - EXOSTOSIS [None]
  - HEART RATE IRREGULAR [None]
  - PALPITATIONS [None]
